FAERS Safety Report 9266709 (Version 1)
Quarter: 2013Q2

REPORT INFORMATION
  Report Type: Spontaneous
  Country: US (occurrence: US)
  Receive Date: 20130502
  Receipt Date: 20130502
  Transmission Date: 20140414
  Serious: Yes (Hospitalization, Other)
  Sender: FDA-Public Use
  Company Number: US-ROCHE-720563

PATIENT
  Age: 16 Year
  Sex: Male
  Weight: 72.6 kg

DRUGS (2)
  1. ACCUTANE [Suspect]
     Indication: ACNE
     Route: 065
     Dates: start: 19960125, end: 1998
  2. ADVIL [Concomitant]

REACTIONS (8)
  - Colitis ulcerative [Unknown]
  - Nausea [Unknown]
  - Abdominal pain [Unknown]
  - Rectal haemorrhage [Unknown]
  - Anal abscess [Unknown]
  - Blood triglycerides increased [Unknown]
  - Dry skin [Unknown]
  - Nasal dryness [Unknown]
